FAERS Safety Report 6933247-0 (Version None)
Quarter: 2010Q3

REPORT INFORMATION
  Report Type: 
  Country: None (occurrence: None)
  Receive Date: 20100820
  Receipt Date: 20100810
  Transmission Date: 20110219
  Serious: Yes (Other)
  Sender: FDA-Public Use
  Company Number: JP-BAYER-201011171BYL

PATIENT
  Age: 64 Year
  Sex: Male
  Weight: 57 kg

DRUGS (5)
  1. NEXAVAR [Suspect]
     Indication: HEPATIC NEOPLASM MALIGNANT
     Dosage: UNIT DOSE: 200 MG
     Route: 048
     Dates: start: 20100223, end: 20100707
  2. ALOSITOL [Concomitant]
     Dosage: UNIT DOSE: 100 MG
     Route: 048
     Dates: start: 20100223, end: 20100707
  3. GLYCYRON [Concomitant]
     Dosage: UNIT DOSE: 35 MG
     Route: 048
     Dates: start: 20100223, end: 20100707
  4. BASEN [Concomitant]
     Dosage: UNIT DOSE: 0.2 MG
     Route: 048
     Dates: start: 20100223, end: 20100707
  5. ZETIA [Concomitant]
     Dosage: UNIT DOSE: 10 MG
     Route: 048
     Dates: start: 20100223, end: 20100413

REACTIONS (3)
  - BLISTER [None]
  - SKIN FISSURES [None]
  - TUMOUR PERFORATION [None]
